FAERS Safety Report 4605005-3 (Version None)
Quarter: 2005Q1

REPORT INFORMATION
  Report Type: 
  Country: None (occurrence: None)
  Receive Date: 20050310
  Receipt Date: 20050310
  Transmission Date: 20050727
  Serious: Yes (Life-Threatening, Hospitalization)
  Sender: FDA-Public Use
  Company Number: None

PATIENT
  Age: 66 Year
  Sex: Female
  Weight: 63.5036 kg

DRUGS (1)
  1. BENICAR HCT [Suspect]
     Indication: HYPERTENSION
     Dosage: ONE PER DAY

REACTIONS (5)
  - COUGH [None]
  - DYSPNOEA [None]
  - PANIC REACTION [None]
  - PHARYNGOLARYNGEAL PAIN [None]
  - THROAT TIGHTNESS [None]
